FAERS Safety Report 18405302 (Version 1)
Quarter: 2020Q4

REPORT INFORMATION
  Report Type: Spontaneous
  Country: FR (occurrence: FR)
  Receive Date: 20201020
  Receipt Date: 20201020
  Transmission Date: 20210114
  Serious: Yes (Hospitalization)
  Sender: FDA-Public Use
  Company Number: FR-BAXTER-2020BAX021084

PATIENT
  Age: 84 Year
  Sex: Male

DRUGS (6)
  1. LINEZOLIDE [Suspect]
     Active Substance: LINEZOLID
     Indication: LUNG ABSCESS
     Dosage: NP
     Route: 042
     Dates: start: 20200711, end: 20200907
  2. CEFOTAXIME BASE [Suspect]
     Active Substance: CEFOTAXIME SODIUM
     Indication: LUNG ABSCESS
     Dosage: NP
     Route: 042
     Dates: start: 20200711, end: 20200907
  3. METRONIDAZOLE BAXTER 0,5 POUR CENT, SOLUTION INJECTABLE EN POCHE [Suspect]
     Active Substance: METRONIDAZOLE
     Indication: LUNG ABSCESS
     Dosage: NP
     Route: 042
     Dates: start: 20200711, end: 20200907
  4. XARELTO [Suspect]
     Active Substance: RIVAROXABAN
     Indication: ATRIAL FIBRILLATION
     Dosage: NP
     Route: 048
     Dates: end: 20200918
  5. XATRAL [Suspect]
     Active Substance: ALFUZOSIN
     Indication: BLADDER CATHETER PERMANENT
     Dosage: NP
     Route: 048
     Dates: end: 20200918
  6. PANTOPRAZOLE [Suspect]
     Active Substance: PANTOPRAZOLE
     Indication: PROPHYLAXIS AGAINST GASTROINTESTINAL ULCER
     Dosage: NP
     Route: 048
     Dates: end: 20200918

REACTIONS (1)
  - Pancytopenia [Recovering/Resolving]

NARRATIVE: CASE EVENT DATE: 20200903
